FAERS Safety Report 9764264 (Version 4)
Quarter: 2014Q1

REPORT INFORMATION
  Report Type: Report from Study
  Country: DE (occurrence: DE)
  Receive Date: 20131217
  Receipt Date: 20140228
  Transmission Date: 20141002
  Serious: Yes (Hospitalization)
  Sender: FDA-Public Use
  Company Number: DE-AMGEN-DEUCT2013087438

PATIENT
  Age: 9 Year
  Sex: Female
  Weight: 41.2 kg

DRUGS (5)
  1. ETANERCEPT [Suspect]
     Indication: PRODUCT USED FOR UNKNOWN INDICATION
     Dosage: 12.5 MG, 2 TIMES/WK
     Route: 065
     Dates: start: 20110322, end: 20130121
  2. NAPROXEN [Concomitant]
     Indication: JUVENILE IDIOPATHIC ARTHRITIS
     Dosage: 500 MG, 1X/DAY
     Route: 048
     Dates: start: 20110322, end: 20120612
  3. PREDNISON [Concomitant]
     Indication: JUVENILE IDIOPATHIC ARTHRITIS
     Dosage: UNK
     Route: 048
     Dates: start: 20110322, end: 20120612
  4. METHOTREXATE SODIUM [Concomitant]
     Dosage: 15 MG, WEEKLY
     Dates: start: 20110322, end: 20111001
  5. ARAVA [Concomitant]
     Dosage: 15 MG, 1X/DAY
     Dates: start: 20120117

REACTIONS (1)
  - Herpes zoster [Recovered/Resolved]
